FAERS Safety Report 5828955-9 (Version None)
Quarter: 2008Q3

REPORT INFORMATION
  Report Type: 
  Country: None (occurrence: None)
  Receive Date: 20080731
  Receipt Date: 20080718
  Transmission Date: 20090109
  Serious: Yes (Other)
  Sender: FDA-Public Use
  Company Number: PHHY2008JP12894

PATIENT
  Sex: Male
  Weight: 62 kg

DRUGS (1)
  1. LAMISIL [Suspect]
     Dosage: 125MG/DAILY
     Route: 048
     Dates: start: 20080528, end: 20080630

REACTIONS (12)
  - ALANINE AMINOTRANSFERASE INCREASED [None]
  - ANOREXIA [None]
  - ASPARTATE AMINOTRANSFERASE INCREASED [None]
  - BILIRUBIN CONJUGATED INCREASED [None]
  - BLOOD ALKALINE PHOSPHATASE INCREASED [None]
  - BLOOD BILIRUBIN INCREASED [None]
  - C-REACTIVE PROTEIN INCREASED [None]
  - CHOLANGITIS [None]
  - GAMMA-GLUTAMYLTRANSFERASE INCREASED [None]
  - LIVER DISORDER [None]
  - MALAISE [None]
  - PYREXIA [None]
